FAERS Safety Report 8557548-8 (Version None)
Quarter: 2012Q3

REPORT INFORMATION
  Report Type: 
  Country: None (occurrence: None)
  Receive Date: 20120801
  Receipt Date: 20120723
  Transmission Date: 20120928
  Serious: Yes (Hospitalization, Other)
  Sender: FDA-Public Use
  Company Number: US-ABBOTT-12P-163-0955897-00

PATIENT
  Sex: Female
  Weight: 41.768 kg

DRUGS (6)
  1. HUMIRA [Suspect]
     Indication: RHEUMATOID ARTHRITIS
     Dates: start: 20110101, end: 20110505
  2. ATENOLOL [Concomitant]
     Indication: PRODUCT USED FOR UNKNOWN INDICATION
     Dosage: 1 IN 1 DAY, NIGHTLY
  3. HUMIRA [Suspect]
     Dates: start: 20111020
  4. TOPOROL [Concomitant]
     Indication: PALPITATIONS
  5. REMICADE [Concomitant]
     Indication: RHEUMATOID ARTHRITIS
  6. ZOFRAN [Concomitant]
     Indication: NAUSEA

REACTIONS (25)
  - HEART RATE INCREASED [None]
  - CYSTITIS INTERSTITIAL [None]
  - ABDOMINAL DISTENSION [None]
  - PALPITATIONS [None]
  - BLOOD PRESSURE FLUCTUATION [None]
  - NAUSEA [None]
  - FEELING ABNORMAL [None]
  - FATIGUE [None]
  - OEDEMA PERIPHERAL [None]
  - GAIT DISTURBANCE [None]
  - TACHYCARDIA [None]
  - ABDOMINAL PAIN [None]
  - FIBRIN D DIMER INCREASED [None]
  - SYNOVITIS [None]
  - MALAISE [None]
  - MUSCLE SPASMS [None]
  - VISUAL IMPAIRMENT [None]
  - DYSPNOEA [None]
  - BLADDER CANCER [None]
  - ASTHENIA [None]
  - BLOOD POTASSIUM INCREASED [None]
  - RHEUMATOID ARTHRITIS [None]
  - ARTHRALGIA [None]
  - BLADDER DISORDER [None]
  - JOINT STIFFNESS [None]
